FAERS Safety Report 6161457-1 (Version None)
Quarter: 2009Q2

REPORT INFORMATION
  Report Type: 
  Country: None (occurrence: None)
  Receive Date: 20090421
  Receipt Date: 20090416
  Transmission Date: 20091009
  Serious: Yes (Hospitalization)
  Sender: FDA-Public Use
  Company Number: IT-B.I. PHARMACEUTICALS,INC./RIDGEFIELD-2009-DE-03115GD

PATIENT
  Age: 66 Year
  Sex: Female

DRUGS (6)
  1. TELMISARTAN [Suspect]
     Indication: HYPERTENSION
     Dosage: 80MG
  2. ROSUVASTATIN CALCIUM [Suspect]
     Indication: HYPERLIPIDAEMIA
     Dosage: 10MG
  3. WARFARIN SODIUM [Suspect]
     Indication: ATRIAL FIBRILLATION
     Dosage: 2.5MG
  4. RANITIDINE [Concomitant]
     Dosage: 150MG
     Route: 048
  5. FUROSEMIDE [Concomitant]
     Dosage: 25MG
     Route: 048
  6. CARVEDILOL [Concomitant]
     Indication: HYPERTENSION
     Dosage: 12.5MG

REACTIONS (4)
  - DRUG INTERACTION [None]
  - HEPATIC FAILURE [None]
  - RENAL FAILURE [None]
  - RHABDOMYOLYSIS [None]
